FAERS Safety Report 26009820 (Version 1)
Quarter: 2025Q4

REPORT INFORMATION
  Report Type: Spontaneous
  Country: US (occurrence: US)
  Receive Date: 20251107
  Receipt Date: 20251107
  Transmission Date: 20260118
  Serious: Yes (Hospitalization, Other)
  Sender: BAXTER
  Company Number: US-BAXTER-2025BAX023672

PATIENT
  Age: 5 Year
  Sex: Female

DRUGS (1)
  1. ACETAMINOPHEN [Suspect]
     Active Substance: ACETAMINOPHEN
     Dosage: UNKNOWN QUANTITY OF ADULT-FORMULATION ACETAMINOPHEN OF UNSPECIFIED STRENGTH
     Route: 065

REACTIONS (16)
  - Overdose [Unknown]
  - Accidental exposure to product by child [Unknown]
  - Coagulopathy [Recovering/Resolving]
  - Brain oedema [Recovering/Resolving]
  - Intracranial pressure increased [Recovering/Resolving]
  - Chills [Recovering/Resolving]
  - Gastrointestinal disorder [Recovering/Resolving]
  - Jaundice [Recovering/Resolving]
  - Hypoglycaemia [Recovering/Resolving]
  - Condition aggravated [Recovering/Resolving]
  - Acute hepatic failure [Recovering/Resolving]
  - Aspartate aminotransferase increased [Recovering/Resolving]
  - Alanine aminotransferase increased [Recovering/Resolving]
  - Blood bilirubin increased [Recovered/Resolved]
  - Vomiting [Recovering/Resolving]
  - Encephalopathy [Recovering/Resolving]
